FAERS Safety Report 6543524-3 (Version None)
Quarter: 2010Q1

REPORT INFORMATION
  Report Type: 
  Country: None (occurrence: None)
  Receive Date: 20100120
  Receipt Date: 20100118
  Transmission Date: 20100710
  Serious: Yes (Hospitalization)
  Sender: FDA-Public Use
  Company Number: B0627289A

PATIENT
  Age: 62 Year
  Sex: Female

DRUGS (2)
  1. AUGMENTIN '125' [Suspect]
     Indication: DRUG USE FOR UNKNOWN INDICATION
     Route: 048
     Dates: start: 20090404, end: 20090424
  2. EBASTINE [Concomitant]
     Dosage: 10MG PER DAY
     Route: 048
     Dates: start: 20090324, end: 20090414

REACTIONS (6)
  - ACHOLIA [None]
  - CHOLURIA [None]
  - HEPATITIS CHOLESTATIC [None]
  - JAUNDICE [None]
  - MALAISE [None]
  - PRURITUS [None]
